FAERS Safety Report 9372128 (Version 1)
Quarter: 2013Q2

REPORT INFORMATION
  Report Type: Report from Study
  Country: US (occurrence: US)
  Receive Date: 20130627
  Receipt Date: 20130627
  Transmission Date: 20140414
  Serious: Yes (Death)
  Sender: FDA-Public Use
  Company Number: US-MYLANLABS-2012S1015474

PATIENT
  Sex: Male

DRUGS (1)
  1. CLOZAPINE TABLETS [Suspect]

REACTIONS (1)
  - Death [Fatal]
